FAERS Safety Report 15478802 (Version 1)
Quarter: 2018Q4

REPORT INFORMATION
  Report Type: Spontaneous
  Country: FR (occurrence: FR)
  Receive Date: 20181009
  Receipt Date: 20181009
  Transmission Date: 20190205
  Serious: Yes (Death)
  Sender: FDA-Public Use
  Company Number: FR-JNJFOC-20181006021

PATIENT
  Age: 59 Year
  Sex: Male
  Weight: 120 kg

DRUGS (1)
  1. SYLVANT [Suspect]
     Active Substance: SILTUXIMAB
     Indication: CASTLEMAN^S DISEASE
     Route: 042
     Dates: start: 20180814, end: 2018

REACTIONS (2)
  - Haemophagocytic lymphohistiocytosis [Fatal]
  - Septic shock [Fatal]

NARRATIVE: CASE EVENT DATE: 20180822
